FAERS Safety Report 6136630-9 (Version None)
Quarter: 2009Q1

REPORT INFORMATION
  Report Type: 
  Country: None (occurrence: None)
  Receive Date: 20090330
  Receipt Date: 20090326
  Transmission Date: 20090719
  Serious: Yes (Death)
  Sender: FDA-Public Use
  Company Number: A0774885A

PATIENT
  Sex: Male
  Weight: 93.6 kg

DRUGS (4)
  1. ELTROMBOPAG [Suspect]
     Indication: THROMBOCYTOPENIA
     Route: 048
     Dates: start: 20081124, end: 20081214
  2. ELTROMBOPAG [Suspect]
     Dosage: 25MG VARIABLE DOSE
     Route: 048
     Dates: start: 20081215
  3. PEG-INTRON [Suspect]
     Dosage: 150UG WEEKLY
     Route: 058
     Dates: start: 20081215
  4. REBETOL [Suspect]
     Route: 048
     Dates: start: 20081215

REACTIONS (2)
  - MELAENA [None]
  - OESOPHAGEAL VARICES HAEMORRHAGE [None]
